FAERS Safety Report 12309632 (Version 3)
Quarter: 2018Q2

REPORT INFORMATION
  Report Type: Report from Study
  Country: US (occurrence: US)
  Receive Date: 20160427
  Receipt Date: 20180604
  Transmission Date: 20180711
  Serious: Yes (Hospitalization)
  Sender: FDA-Public Use
  Company Number: US-JNJFOC-20160415457

PATIENT
  Age: 72 Year
  Sex: Male

DRUGS (15)
  1. IBRUTINIB [Suspect]
     Active Substance: IBRUTINIB
     Indication: CHRONIC LYMPHOCYTIC LEUKAEMIA
     Dosage: ALL CYCLES
     Route: 048
     Dates: start: 20151105, end: 20160331
  2. DOXEPIN HCL [Concomitant]
     Active Substance: DOXEPIN HYDROCHLORIDE
  3. OMEPRAZOLE. [Concomitant]
     Active Substance: OMEPRAZOLE
  4. RITUXIMAB. [Suspect]
     Active Substance: RITUXIMAB
     Indication: THERAPY NAIVE
     Dosage: CYCLE 2, 375 MG/M2, DAYS 1,8,15,AND 22
     Route: 042
     Dates: end: 20160331
  5. BYDUREON [Concomitant]
     Active Substance: EXENATIDE
  6. SIMVASTATIN. [Concomitant]
     Active Substance: SIMVASTATIN
  7. IBRUTINIB [Suspect]
     Active Substance: IBRUTINIB
     Indication: THERAPY NAIVE
     Dosage: ALL CYCLES
     Route: 048
     Dates: start: 20151105, end: 20160331
  8. RITUXIMAB. [Suspect]
     Active Substance: RITUXIMAB
     Indication: CHRONIC LYMPHOCYTIC LEUKAEMIA
     Dosage: CYCLES 3-6, 375 MG/M2, DAY1
     Route: 042
  9. FENOFIBRATE MICRO [Concomitant]
     Active Substance: FENOFIBRATE
  10. LANTUS [Concomitant]
     Active Substance: INSULIN GLARGINE
  11. PIOGLITAZONE HCL [Concomitant]
     Active Substance: PIOGLITAZONE
  12. RITUXIMAB. [Suspect]
     Active Substance: RITUXIMAB
     Indication: THERAPY NAIVE
     Dosage: CYCLES 3-6, 375 MG/M2, DAY1
     Route: 042
  13. RITUXIMAB. [Suspect]
     Active Substance: RITUXIMAB
     Indication: CHRONIC LYMPHOCYTIC LEUKAEMIA
     Dosage: CYCLE 2, 375 MG/M2, DAYS 1,8,15,AND 22
     Route: 042
     Dates: end: 20160331
  14. JANUVIA [Concomitant]
     Active Substance: SITAGLIPTIN PHOSPHATE
  15. RANITIDINE. [Concomitant]
     Active Substance: RANITIDINE

REACTIONS (2)
  - Syncope [Recovered/Resolved with Sequelae]
  - Embolism [Recovered/Resolved]

NARRATIVE: CASE EVENT DATE: 20160327
